FAERS Safety Report 8343159-6 (Version None)
Quarter: 2012Q2

REPORT INFORMATION
  Report Type: 
  Country: None (occurrence: None)
  Receive Date: 20120508
  Receipt Date: 20120504
  Transmission Date: 20120825
  Serious: Yes (Hospitalization, Other)
  Sender: FDA-Public Use
  Company Number: US-PFIZER INC-2012109890

PATIENT
  Sex: Male

DRUGS (2)
  1. LYRICA [Suspect]
     Dosage: UNK
  2. SPIRIVA [Suspect]
     Dosage: UNK

REACTIONS (3)
  - PULMONARY THROMBOSIS [None]
  - NEUROPATHY PERIPHERAL [None]
  - NEPHROLITHIASIS [None]
